FAERS Safety Report 13299245 (Version 3)
Quarter: 2017Q2

REPORT INFORMATION
  Report Type: Spontaneous
  Country: SY (occurrence: SY)
  Receive Date: 20170306
  Receipt Date: 20170403
  Transmission Date: 20170830
  Serious: Yes (Death, Hospitalization)
  Sender: FDA-Public Use
  Company Number: SY-JNJFOC-20170301567

PATIENT
  Age: 43 Year
  Sex: Male
  Weight: 80 kg

DRUGS (8)
  1. CORTISONE [Concomitant]
     Active Substance: CORTISONE\HYDROCORTISONE
     Indication: PSORIATIC ARTHROPATHY
     Route: 065
  2. ZYLORIC [Concomitant]
     Active Substance: ALLOPURINOL
     Route: 065
  3. METHOTREXATE. [Concomitant]
     Active Substance: METHOTREXATE
     Indication: PSORIATIC ARTHROPATHY
     Dosage: STOPPED 2 MONTHS AGO
     Route: 065
     Dates: end: 201701
  4. REMICADE [Suspect]
     Active Substance: INFLIXIMAB
     Indication: PSORIATIC ARTHROPATHY
     Route: 042
     Dates: start: 20161016
  5. REMICADE [Suspect]
     Active Substance: INFLIXIMAB
     Indication: PSORIATIC ARTHROPATHY
     Route: 042
     Dates: start: 20170125
  6. REMICADE [Suspect]
     Active Substance: INFLIXIMAB
     Indication: PSORIATIC ARTHROPATHY
     Route: 042
     Dates: start: 20161003
  7. REMICADE [Suspect]
     Active Substance: INFLIXIMAB
     Indication: PSORIATIC ARTHROPATHY
     Route: 042
     Dates: start: 20161204
  8. METICRANE [Concomitant]
     Indication: DIABETES MELLITUS
     Route: 065

REACTIONS (8)
  - Viral infection [Unknown]
  - Septic shock [Fatal]
  - Metabolic acidosis [Fatal]
  - Splenomegaly [Unknown]
  - Decreased appetite [Unknown]
  - Myalgia [Not Recovered/Not Resolved]
  - Respiratory acidosis [Fatal]
  - Back pain [Recovering/Resolving]

NARRATIVE: CASE EVENT DATE: 201702
